FAERS Safety Report 6688951-9 (Version None)
Quarter: 2010Q2

REPORT INFORMATION
  Report Type: 
  Country: None (occurrence: None)
  Receive Date: 20100420
  Receipt Date: 20100331
  Transmission Date: 20101027
  Serious: No
  Sender: FDA-Public Use
  Company Number: US-B.I. PHARMACEUTICALS,INC./RIDGEFIELD-2009-BP-12642BP

PATIENT
  Sex: Female
  Weight: 49.9 kg

DRUGS (4)
  1. SPIRIVA [Suspect]
     Indication: EMPHYSEMA
     Dosage: 18 MCG
     Route: 055
     Dates: start: 20060530
  2. MULIT-VITAMIN [Concomitant]
  3. CALCIUM [Concomitant]
  4. ATENOLOL [Concomitant]

REACTIONS (6)
  - DENTAL CARIES [None]
  - DRY MOUTH [None]
  - DYSGEUSIA [None]
  - DYSPNOEA EXERTIONAL [None]
  - GINGIVAL PAIN [None]
  - WHEEZING [None]
